FAERS Safety Report 5406827-1 (Version None)
Quarter: 2007Q3

REPORT INFORMATION
  Report Type: 
  Country: None (occurrence: None)
  Receive Date: 20070807
  Receipt Date: 20070726
  Transmission Date: 20080115
  Serious: Yes (Death)
  Sender: FDA-Public Use
  Company Number: HQWYE371202AUG07

PATIENT
  Age: 19 Year
  Sex: Male

DRUGS (6)
  1. IBUPROFEN [Suspect]
     Dosage: UNKNOWN
     Route: 065
  2. PHENYTOIN [Suspect]
     Dosage: UNKNOWN
     Route: 065
  3. LIGNOCAINE [Suspect]
     Dosage: UNKNOWN
     Route: 065
  4. PHENYLPROPANOLAMINE [Suspect]
     Dosage: UNKNOWN
     Route: 065
  5. CYCLOBENZAPRINE HCL [Suspect]
     Dosage: UNKNOWN
     Route: 065
  6. CHLORPHENIRAMINE MALEATE [Suspect]
     Dosage: UNKNOWN
     Route: 065

REACTIONS (3)
  - METABOLIC ACIDOSIS [None]
  - OVERDOSE [None]
  - TACHYCARDIA [None]
